FAERS Safety Report 9318223 (Version 1)
Quarter: 2013Q2

REPORT INFORMATION
  Report Type: Spontaneous
  Country: US (occurrence: US)
  Receive Date: 20130530
  Receipt Date: 20130530
  Transmission Date: 20140414
  Serious: No
  Sender: FDA-Public Use
  Company Number: US-GLAXOSMITHKLINE-A1008826A

PATIENT
  Age: 77 Year
  Sex: Male

DRUGS (5)
  1. VENTOLIN [Suspect]
     Indication: BRONCHITIS
     Dosage: 1PUFF AS REQUIRED
     Route: 055
     Dates: start: 20130113, end: 20130115
  2. AZITHROMYCIN [Concomitant]
  3. PREDNISONE [Concomitant]
  4. ATENOLOL [Concomitant]
  5. ACUPRIL [Concomitant]

REACTIONS (4)
  - Condition aggravated [Recovering/Resolving]
  - Headache [Unknown]
  - Hypersensitivity [Unknown]
  - Wheezing [Unknown]
